FAERS Safety Report 4372311-X (Version None)
Quarter: 2004Q2

REPORT INFORMATION
  Report Type: 
  Country: None (occurrence: None)
  Receive Date: 20040602
  Receipt Date: 20040518
  Transmission Date: 20050107
  Serious: Yes (Hospitalization)
  Sender: FDA-Public Use
  Company Number: 04P-035-0262095-00

PATIENT
  Age: 54 Year
  Sex: Male

DRUGS (1)
  1. HYTRIN [Suspect]
     Dosage: 2 MG, 1 IN 1 D, PER ORAL
     Route: 048
     Dates: start: 20040402, end: 20040403

REACTIONS (7)
  - ASTHENIA [None]
  - FALL [None]
  - INTERVERTEBRAL DISC PROTRUSION [None]
  - LIGAMENT DISORDER [None]
  - SPINAL CORD COMPRESSION [None]
  - SPINAL CORD INJURY CERVICAL [None]
  - TOOTH LOSS [None]
